FAERS Safety Report 26171664 (Version 1)
Quarter: 2025Q4

REPORT INFORMATION
  Report Type: Spontaneous
  Country: US (occurrence: US)
  Receive Date: 20251217
  Receipt Date: 20251217
  Transmission Date: 20260117
  Serious: Yes (Other)
  Sender: NOVO NORDISK
  Company Number: US-NOVOPROD-1584809

PATIENT
  Age: 57 Year
  Sex: Female

DRUGS (1)
  1. TRESIBA [Suspect]
     Active Substance: INSULIN DEGLUDEC
     Indication: Type 2 diabetes mellitus
     Dosage: 12 IU, QD AROUND 8-9 PM
     Route: 058
     Dates: start: 202507

REACTIONS (2)
  - Limb injury [Not Recovered/Not Resolved]
  - Limb discomfort [Not Recovered/Not Resolved]
